FAERS Safety Report 5108075-1 (Version None)
Quarter: 2006Q3

REPORT INFORMATION
  Report Type: 
  Country: None (occurrence: None)
  Receive Date: 20060919
  Receipt Date: 20060905
  Transmission Date: 20061208
  Serious: Yes (Hospitalization, Other)
  Sender: FDA-Public Use
  Company Number: JP-PURDUE-MAG_2006_0000483

PATIENT
  Age: 58 Year
  Sex: Female

DRUGS (14)
  1. OXYCODONE HCL [Suspect]
     Indication: CANCER PAIN
     Dosage: 5 MG, BID
     Route: 048
     Dates: start: 20050725, end: 20050731
  2. OXYCODONE HCL [Suspect]
     Dosage: 20 MG, DAILY
     Route: 048
     Dates: start: 20050801, end: 20050828
  3. OXYCODONE HCL [Suspect]
     Dosage: 10 MG, DAILY
     Route: 048
     Dates: start: 20050829, end: 20050912
  4. OXYCODONE HCL [Suspect]
     Dosage: 20 MG, DAILY
     Route: 048
     Dates: start: 20050913, end: 20050925
  5. OXYCODONE HCL [Suspect]
     Dosage: 30 MG, DAILY
     Route: 048
     Dates: start: 20050926, end: 20050929
  6. OXYCODONE HCL [Suspect]
     Dosage: 40 MG, DAILY
     Route: 048
     Dates: start: 20050930, end: 20051004
  7. DOGMATIL [Suspect]
     Indication: PROPHYLAXIS OF NAUSEA AND VOMITING
     Dosage: 100 MG, DAILY
     Route: 048
     Dates: start: 20050725, end: 20051004
  8. FLOMOX [Concomitant]
     Indication: CYSTITIS
     Dosage: 300 MG, DAILY
     Route: 048
     Dates: start: 20050724, end: 20050728
  9. ADONA [Concomitant]
     Indication: HAEMATURIA
     Dosage: 90 MG, DAILY
     Route: 048
     Dates: start: 20050724, end: 20050728
  10. TRANSAMIN [Concomitant]
     Indication: HAEMATURIA
     Dosage: 750 MG, DAILY
     Route: 048
     Dates: start: 20050724, end: 20050728
  11. TEGRETOL [Concomitant]
     Indication: CANCER PAIN
     Dosage: 100 MG, DAILY
     Route: 048
     Dates: start: 20050912, end: 20050929
  12. TEGRETOL [Concomitant]
     Dosage: 200 MG, DAILY
     Route: 048
     Dates: start: 20050930
  13. MOBIC [Concomitant]
     Indication: CANCER PAIN
     Dosage: 10 MG, DAILY
     Route: 048
     Dates: start: 20050930
  14. ACETAMINOPHEN [Concomitant]
     Indication: CANCER PAIN
     Dosage: 2 GRAM, DAILY
     Route: 048
     Dates: start: 20050720

REACTIONS (7)
  - BLOOD CREATINE PHOSPHOKINASE INCREASED [None]
  - EXTRAPYRAMIDAL DISORDER [None]
  - HYDRONEPHROSIS [None]
  - INSOMNIA [None]
  - OEDEMA PERIPHERAL [None]
  - PYREXIA [None]
  - STOMACH DISCOMFORT [None]
